FAERS Safety Report 9449837 (Version 1)
Quarter: 2013Q3

REPORT INFORMATION
  Report Type: Report from Study
  Country: BR (occurrence: BR)
  Receive Date: 20130809
  Receipt Date: 20130809
  Transmission Date: 20140515
  Serious: Yes (Hospitalization, Other)
  Sender: FDA-Public Use
  Company Number: PHHY2013BR084942

PATIENT
  Age: 89 Year
  Sex: Female

DRUGS (9)
  1. DIOVAN [Suspect]
     Indication: HYPERTENSION
     Dosage: 1 DF (80/25MG 80/12.5MG), DAILY
     Route: 048
  2. DIOVAN [Suspect]
     Dosage: 0.5 DF (80MG), DAILY
     Route: 048
  3. DIOVAN [Suspect]
     Dosage: 1 DF (80MG), BID (IN THE MORNING AND AT NIGHT)
  4. EXELON PATCH [Suspect]
     Indication: MEMORY IMPAIRMENT
     Dosage: 9.5 MG, DAILY
     Route: 062
  5. SELOZOK [Concomitant]
     Indication: CARDIAC DISORDER
     Dosage: 1 DF (50MG), DAILY
     Route: 048
  6. EVISTA [Concomitant]
     Indication: BONE DISORDER
     Dosage: 1 DF, DAILY
     Route: 048
  7. PRISTIQ [Concomitant]
     Indication: ANTIDEPRESSANT THERAPY
     Dosage: 1 DF , DAILY
     Route: 048
  8. VENLAXIN [Concomitant]
     Indication: ANTIDEPRESSANT THERAPY
     Dosage: 1 DF, DAILY
     Route: 048
  9. ZYPREXA [Concomitant]
     Indication: FEAR
     Dosage: 1 DF (5 MG), DAILY
     Route: 048

REACTIONS (3)
  - Fall [Recovering/Resolving]
  - Lower limb fracture [Recovering/Resolving]
  - Blood pressure increased [Recovering/Resolving]
